FAERS Safety Report 8276008-5 (Version None)
Quarter: 2012Q2

REPORT INFORMATION
  Report Type: 
  Country: None (occurrence: None)
  Receive Date: 20120412
  Receipt Date: 20120403
  Transmission Date: 20120825
  Serious: Yes (Hospitalization)
  Sender: FDA-Public Use
  Company Number: US-BAYER-201033311NA

PATIENT
  Age: 32 Year
  Sex: Female
  Weight: 95 kg

DRUGS (7)
  1. DROSPIRENONE AND ETHINYL ESTRADIOL [Suspect]
     Indication: ORAL CONTRACEPTION
     Dosage: UNK
     Dates: start: 20080801, end: 20100101
  2. FINACEA [Concomitant]
  3. ACIPHEX [Concomitant]
     Indication: GASTROOESOPHAGEAL REFLUX DISEASE
     Dosage: 1 TAB PER DAY
     Route: 048
     Dates: start: 20070101
  4. DOXYCYCLINE [Concomitant]
     Dosage: 40 MG, UNK
  5. YASMIN [Suspect]
     Indication: ORAL CONTRACEPTION
     Dosage: UNK
     Route: 048
     Dates: start: 20080401, end: 20080701
  6. ACIPHEX [Concomitant]
     Dosage: 20 MG, UNK
  7. SPIRONOLACTONE [Concomitant]
     Dosage: 50 MG, UNK
     Route: 048

REACTIONS (9)
  - PULMONARY EMBOLISM [None]
  - INTRACRANIAL VENOUS SINUS THROMBOSIS [None]
  - COUGH [None]
  - NAUSEA [None]
  - DYSPNOEA [None]
  - OXYGEN SATURATION DECREASED [None]
  - VOMITING [None]
  - DIZZINESS [None]
  - HEADACHE [None]
